FAERS Safety Report 5914523-7 (Version None)
Quarter: 2008Q4

REPORT INFORMATION
  Report Type: 
  Country: None (occurrence: None)
  Receive Date: 20081008
  Receipt Date: 20081001
  Transmission Date: 20090506
  Serious: Yes (Life-Threatening, Hospitalization, Other)
  Sender: FDA-Public Use
  Company Number: 2005-07-1776

PATIENT
  Age: 68 Year
  Sex: Male
  Weight: 61 kg

DRUGS (13)
  1. PEG-INTRON [Suspect]
     Indication: HEPATITIS C
     Dosage: 100 MCG;QW;SC
     Route: 058
     Dates: start: 20050615, end: 20050713
  2. REBETOL [Suspect]
     Indication: HEPATITIS C
     Dosage: 600 MG;QD;PO; 600 MG;QD;PO
     Route: 048
     Dates: start: 20040329, end: 20040406
  3. REBETOL [Suspect]
     Indication: HEPATITIS C
     Dosage: 600 MG;QD;PO; 600 MG;QD;PO
     Route: 048
     Dates: start: 20050615, end: 20050722
  4. INTRON A [Suspect]
     Indication: HEPATITIS C
     Dosage: 6 MIU; IM
     Route: 030
     Dates: start: 20040329, end: 20040404
  5. ALOSITOL [Concomitant]
  6. AMLODIPINE [Concomitant]
  7. FAMOTIDINE [Concomitant]
  8. PANVITAN [Concomitant]
  9. URSO 250 [Concomitant]
  10. GLIMICRON [Concomitant]
  11. LASIX [Concomitant]
  12. LIVACT [Concomitant]
  13. PAGASYS (PEGYLATED INTERFERON ALFA-2A) [Concomitant]

REACTIONS (10)
  - ASCITES [None]
  - DECREASED APPETITE [None]
  - HEPATIC NEOPLASM MALIGNANT [None]
  - HYPOALBUMINAEMIA [None]
  - IMMUNE SYSTEM DISORDER [None]
  - INFECTION SUSCEPTIBILITY INCREASED [None]
  - NO THERAPEUTIC RESPONSE [None]
  - PATHOGEN RESISTANCE [None]
  - PLATELET COUNT INCREASED [None]
  - PYOTHORAX [None]
